FAERS Safety Report 6503636-7 (Version None)
Quarter: 2009Q4

REPORT INFORMATION
  Report Type: 
  Country: None (occurrence: None)
  Receive Date: 20091217
  Receipt Date: 20091211
  Transmission Date: 20100525
  Serious: Yes (Other)
  Sender: FDA-Public Use
  Company Number: B0616832A

PATIENT
  Age: 65 Year
  Sex: Female

DRUGS (1)
  1. ALLI [Suspect]
     Indication: OBESITY
     Dosage: 3CAP PER DAY
     Route: 065
     Dates: start: 20091206, end: 20091208

REACTIONS (2)
  - ERYTHEMA [None]
  - SKIN REACTION [None]
